FAERS Safety Report 4970348-0 (Version None)
Quarter: 2006Q2

REPORT INFORMATION
  Report Type: 
  Country: None (occurrence: None)
  Receive Date: 20060412
  Receipt Date: 20060406
  Transmission Date: 20061013
  Serious: Yes (Hospitalization)
  Sender: FDA-Public Use
  Company Number: 2006CG00650

PATIENT
  Age: 75 Year
  Sex: Male

DRUGS (9)
  1. NEXIUM [Suspect]
     Route: 048
     Dates: start: 20060221, end: 20060302
  2. PREVISCAN [Concomitant]
     Route: 048
     Dates: start: 20060216
  3. LEVOTHYROX [Concomitant]
     Route: 048
  4. CORDARONE [Concomitant]
     Route: 048
     Dates: start: 20060216
  5. SPASFON [Concomitant]
     Route: 048
     Dates: start: 20060216
  6. DEBRIDAT [Concomitant]
  7. MOTILIUM [Concomitant]
  8. CARBOSYLANE [Concomitant]
  9. TAXOTERE [Concomitant]
     Dates: end: 20060127

REACTIONS (2)
  - GENERAL PHYSICAL HEALTH DETERIORATION [None]
  - NEUTROPENIA [None]
